FAERS Safety Report 9704511 (Version 1)
Quarter: 2013Q4

REPORT INFORMATION
  Report Type: Spontaneous
  Country: US (occurrence: US)
  Receive Date: 20131122
  Receipt Date: 20131122
  Transmission Date: 20140711
  Serious: Yes (Other)
  Sender: FDA-Public Use
  Company Number: US-PFIZER INC-2013333255

PATIENT
  Age: 51 Year
  Sex: Female
  Weight: 136 kg

DRUGS (2)
  1. LYRICA [Suspect]
     Indication: FIBROMYALGIA
     Dosage: 300 MG, 2X/DAY
     Route: 048
     Dates: start: 201305, end: 20131110
  2. LYRICA [Suspect]
     Dosage: 300 MG, 1X/DAY
     Route: 048
     Dates: start: 20131110, end: 20131117

REACTIONS (5)
  - Renal impairment [Unknown]
  - Hepatic enzyme increased [Unknown]
  - Chills [Not Recovered/Not Resolved]
  - Headache [Not Recovered/Not Resolved]
  - Nausea [Not Recovered/Not Resolved]
